FAERS Safety Report 24865385 (Version 1)
Quarter: 2025Q1

REPORT INFORMATION
  Report Type: Spontaneous
  Country: US (occurrence: US)
  Receive Date: 20250121
  Receipt Date: 20250121
  Transmission Date: 20250409
  Serious: No
  Sender: ELI LILLY AND COMPANY
  Company Number: US-ELI_LILLY_AND_COMPANY-US202501009606

PATIENT
  Sex: Male

DRUGS (1)
  1. JAYPIRCA [Suspect]
     Active Substance: PIRTOBRUTINIB
     Indication: Neoplasm malignant
     Dosage: 100 MG, BID`
     Route: 048
     Dates: start: 202401

REACTIONS (2)
  - Herpes zoster [Recovering/Resolving]
  - Fatigue [Not Recovered/Not Resolved]
